FAERS Safety Report 7409231-X (Version None)
Quarter: 2011Q2

REPORT INFORMATION
  Report Type: 
  Country: None (occurrence: None)
  Receive Date: 20110412
  Receipt Date: 20110407
  Transmission Date: 20111010
  Serious: Yes (Hospitalization)
  Sender: FDA-Public Use
  Company Number: A0886341A

PATIENT
  Age: 37 Year
  Sex: Male
  Weight: 147.5 kg

DRUGS (2)
  1. AVANDARYL [Suspect]
     Route: 048
  2. AVANDIA [Suspect]
     Dosage: 8MG TWICE PER DAY
     Route: 048
     Dates: end: 20090301

REACTIONS (1)
  - ACUTE MYOCARDIAL INFARCTION [None]
